FAERS Safety Report 15718767 (Version 2)
Quarter: 2019Q1

REPORT INFORMATION
  Report Type: Spontaneous
  Country: US (occurrence: US)
  Receive Date: 20181213
  Receipt Date: 20190117
  Transmission Date: 20190417
  Serious: Yes (Other)
  Sender: FDA-Public Use
  Company Number: US-GLAXOSMITHKLINE-US2018220364

PATIENT
  Age: 62 Year
  Sex: Female
  Weight: 108.8 kg

DRUGS (1)
  1. BENLYSTA [Suspect]
     Active Substance: BELIMUMAB
     Indication: PRODUCT USED FOR UNKNOWN INDICATION
     Dosage: UNK UNK, U
     Route: 042
     Dates: start: 20181019, end: 20181205

REACTIONS (2)
  - Cellulitis [Unknown]
  - Product dose omission [Unknown]

NARRATIVE: CASE EVENT DATE: 20181205
